FAERS Safety Report 5028094-3 (Version None)
Quarter: 2006Q2

REPORT INFORMATION
  Report Type: 
  Country: None (occurrence: None)
  Receive Date: 20060613
  Receipt Date: 20060531
  Transmission Date: 20061013
  Serious: Yes (Hospitalization, Other)
  Sender: FDA-Public Use
  Company Number: 2006071197

PATIENT
  Age: 53 Year
  Sex: Female
  Weight: 70.3075 kg

DRUGS (2)
  1. LIPITOR [Suspect]
     Indication: BLOOD CHOLESTEROL INCREASED
     Dosage: 20 MG (20 MG, 1 IN 1 D), ORAL
     Route: 048
     Dates: start: 20010101, end: 20041101
  2. XANAX [Concomitant]

REACTIONS (15)
  - ANAEMIA [None]
  - CONNECTIVE TISSUE DISORDER [None]
  - DEPRESSION [None]
  - HEPATIC CIRRHOSIS [None]
  - HEPATIC LESION [None]
  - HEPATITIS TOXIC [None]
  - HEPATOCELLULAR DAMAGE [None]
  - HYPOALBUMINAEMIA [None]
  - MUSCLE INJURY [None]
  - MYOGLOBINAEMIA [None]
  - OEDEMA [None]
  - PERSONALITY CHANGE [None]
  - RHABDOMYOLYSIS [None]
  - SPLENOMEGALY [None]
  - WEIGHT INCREASED [None]
